FAERS Safety Report 23088190 (Version 1)
Quarter: 2023Q4

REPORT INFORMATION
  Report Type: Spontaneous
  Country: AT (occurrence: AT)
  Receive Date: 20231020
  Receipt Date: 20231020
  Transmission Date: 20240109
  Serious: Yes (Other)
  Sender: FDA-Public Use
  Company Number: AT-CELLTRION INC.-2023AT019782

PATIENT

DRUGS (6)
  1. INFLIXIMAB [Suspect]
     Active Substance: INFLIXIMAB
     Indication: Product used for unknown indication
     Dosage: UNK
     Dates: start: 2014, end: 2015
  2. RINVOQ [Suspect]
     Active Substance: UPADACITINIB
     Indication: Crohn^s disease
     Dosage: 45 MILLIGRAM, QD
     Route: 048
     Dates: start: 202306
  3. RINVOQ [Suspect]
     Active Substance: UPADACITINIB
     Dosage: 30 MILLIGRAM, QD
     Route: 048
  4. GUSELKUMAB [Suspect]
     Active Substance: GUSELKUMAB
     Indication: Product used for unknown indication
     Dosage: UNK
     Dates: start: 201906, end: 202303
  5. HUMIRA [Suspect]
     Active Substance: ADALIMUMAB
     Indication: Crohn^s disease
     Dosage: 40 MILLIGRAM, EVERY 2 WEEKS
     Route: 058
     Dates: start: 2008, end: 2013
  6. VEDOLIZUMAB [Concomitant]
     Active Substance: VEDOLIZUMAB
     Indication: Product used for unknown indication
     Dosage: UNK
     Dates: start: 201801, end: 2019

REACTIONS (21)
  - Pulmonary embolism [Unknown]
  - Thrombosis [Unknown]
  - Terminal ileitis [Unknown]
  - Intestinal fistula [Unknown]
  - Wolff-Parkinson-White syndrome [Unknown]
  - Panniculitis [Unknown]
  - Parenteral nutrition [Unknown]
  - Abscess intestinal [Unknown]
  - Acne [Unknown]
  - Erythema nodosum [Recovered/Resolved]
  - Small intestinal anastomosis [Unknown]
  - Gastrointestinal wall thickening [Unknown]
  - Faecal calprotectin increased [Unknown]
  - Erythema nodosum [Recovering/Resolving]
  - C-reactive protein increased [Unknown]
  - Acne [Unknown]
  - Erythema nodosum [Recovered/Resolved]
  - Infusion related reaction [Unknown]
  - Liver disorder [Recovered/Resolved]
  - Therapeutic product effect decreased [Unknown]
  - Therapeutic product effect decreased [Unknown]

NARRATIVE: CASE EVENT DATE: 20090101
